FAERS Safety Report 7687164-1 (Version None)
Quarter: 2011Q3

REPORT INFORMATION
  Report Type: 
  Country: None (occurrence: None)
  Receive Date: 20110816
  Receipt Date: 20110812
  Transmission Date: 20111222
  Serious: Yes (Other)
  Sender: FDA-Public Use
  Company Number: AU-AMGEN-AUSSP2011037299

PATIENT
  Sex: Male
  Weight: 80 kg

DRUGS (3)
  1. CORTICOSTEROIDS [Concomitant]
     Dosage: 19 MG, QMO
  2. CYCLOPHOSPHAMIDE [Concomitant]
     Dosage: UNK UNK, QMO
  3. NPLATE [Suspect]
     Indication: IDIOPATHIC THROMBOCYTOPENIC PURPURA
     Dosage: 6 A?G/KG, UNK

REACTIONS (3)
  - ERYTHEMA [None]
  - PLATELET COUNT DECREASED [None]
  - PAIN IN EXTREMITY [None]
